FAERS Safety Report 21955860 (Version 1)
Quarter: 2023Q1

REPORT INFORMATION
  Report Type: Spontaneous
  Country: CN (occurrence: CN)
  Receive Date: 20230206
  Receipt Date: 20230206
  Transmission Date: 20230417
  Serious: Yes (Other)
  Sender: FDA-Public Use
  Company Number: None

PATIENT
  Age: 60 Year
  Sex: Female
  Weight: 49 kg

DRUGS (10)
  1. CYCLOPHOSPHAMIDE [Suspect]
     Active Substance: CYCLOPHOSPHAMIDE
     Indication: Invasive breast carcinoma
     Dosage: AT 09:31, 0.74 G, QD, DILUTED WITH 100 ML OF 0.9 % SODIUM CHLORIDE, THIRD CYCLE, AS PART OF EC REGIM
     Route: 041
     Dates: start: 20230107, end: 20230107
  2. CYCLOPHOSPHAMIDE [Suspect]
     Active Substance: CYCLOPHOSPHAMIDE
     Indication: Chemotherapy
  3. SODIUM CHLORIDE [Suspect]
     Active Substance: SODIUM CHLORIDE
     Indication: Medication dilution
     Dosage: AT 09:31, (0.9%), 100 ML, QD, DOSAGE FORM: INJECTION, USED TO DILUTE 125 MG EPIRUBICIN HYDROCHLORIDE
     Route: 041
     Dates: start: 20230107, end: 20230107
  4. EPIRUBICIN [Suspect]
     Active Substance: EPIRUBICIN
     Indication: Invasive breast carcinoma
     Dosage: AT 09:31, 125 MG, QD, DILUTED WITH 100 ML OF 0.9 % SODIUM CHLORIDE, THIRD CYCLE, AS PART OF EC REGIM
     Route: 041
     Dates: start: 20230107, end: 20230107
  5. EPIRUBICIN [Suspect]
     Active Substance: EPIRUBICIN
     Indication: Chemotherapy
  6. SODIUM CHLORIDE [Suspect]
     Active Substance: SODIUM CHLORIDE
     Indication: Invasive breast carcinoma
     Dosage: AT 09:31, 100 ML, QD, USED TO DILUTE 0.74 G CYCLOPHOSPHAMIDE, THIRD CYCLE, AS PART OF EC REGIMEN
     Route: 041
     Dates: start: 20230107, end: 20230107
  7. SODIUM CHLORIDE [Suspect]
     Active Substance: SODIUM CHLORIDE
     Indication: Chemotherapy
  8. TROPISETRON [Concomitant]
     Active Substance: TROPISETRON
     Indication: Prophylaxis of nausea and vomiting
     Dosage: (AFTER CHEMOTHERAPY), 5 MG, DILUTED WITH 5 ML OF 0.9 % SODIUM CHLORIDE
     Route: 042
     Dates: start: 20230107
  9. SODIUM CHLORIDE [Concomitant]
     Active Substance: SODIUM CHLORIDE
     Indication: Medication dilution
     Dosage: (AFTER CHEMOTHERAPY), 5 ML, USED TO DILUTE WITH TROPISETRON 5 MG
     Route: 042
     Dates: start: 20230107
  10. GRANULOCYTE COLONY-STIMULATING FACTOR NOS [Concomitant]
     Active Substance: GRANULOCYTE COLONY-STIMULATING FACTOR NOS
     Indication: Prophylaxis
     Dosage: 150 UG
     Route: 058
     Dates: start: 20230110

REACTIONS (2)
  - White blood cell count decreased [Recovering/Resolving]
  - Neutrophil count decreased [Recovering/Resolving]

NARRATIVE: CASE EVENT DATE: 20230117
